FAERS Safety Report 4467252-3 (Version None)
Quarter: 2004Q4

REPORT INFORMATION
  Report Type: 
  Country: None (occurrence: None)
  Receive Date: 20041006
  Receipt Date: 20040709
  Transmission Date: 20050328
  Serious: Yes (Other)
  Sender: FDA-Public Use
  Company Number: PHEH2004US07444

PATIENT
  Age: 80 Year
  Sex: Female

DRUGS (16)
  1. AREDIA [Suspect]
     Indication: METASTASES TO BONE
     Dosage: 90MG Q28DAYS
     Dates: start: 20010621, end: 20040415
  2. PREDNISONE [Concomitant]
     Indication: RESPIRATORY DISORDER
     Dosage: 5 MG, QD
  3. FEMARA [Concomitant]
     Indication: BREAST CANCER METASTATIC
     Dosage: 2.5 MG, QD
     Dates: end: 20011101
  4. TAMOXIFEN CITRATE [Concomitant]
     Dosage: 20 MG, QD
  5. AVAPRO [Concomitant]
     Indication: HYPERTENSION
     Dosage: 150 MG, QD
  6. CELEBREX [Concomitant]
     Indication: ARTHRITIS
     Dosage: 200 MG, QD
  7. ASPIRIN [Concomitant]
     Dosage: 325 MG, QD
  8. POTASSIUM [Concomitant]
     Dosage: 10 MEQ, QD
  9. FUROSEMIDE [Concomitant]
     Dosage: 40 MG, QHS
  10. CELEXA [Concomitant]
     Dosage: 20 MG, QD
     Dates: start: 20010901
  11. HUMIBID LA [Concomitant]
     Dosage: UNK, UNK
  12. ALBUTEROL [Concomitant]
  13. CLINDAMYCIN [Concomitant]
     Dates: start: 20040301
  14. CEPHALEXIN [Concomitant]
     Dosage: 500 MG, BID
  15. EPOGEN [Concomitant]
  16. ATROVENT [Concomitant]

REACTIONS (7)
  - BONE DEBRIDEMENT [None]
  - DENTAL TREATMENT [None]
  - INFECTION [None]
  - OSTEOLYSIS [None]
  - OSTEOMYELITIS [None]
  - PAIN [None]
  - TOOTH EXTRACTION [None]
